FAERS Safety Report 8115109-9 (Version None)
Quarter: 2012Q1

REPORT INFORMATION
  Report Type: 
  Country: None (occurrence: None)
  Receive Date: 20120201
  Receipt Date: 20120123
  Transmission Date: 20120608
  Serious: Yes (Other)
  Sender: FDA-Public Use
  Company Number: A0962673A

PATIENT
  Age: 53 Year
  Sex: Female

DRUGS (1)
  1. SODIUM FLUORIDE + POTASSIUM NITRATE (FORMULATION UNKNOWN) (SODIUM FLUO [Suspect]
     Indication: SENSITIVITY OF TEETH

REACTIONS (6)
  - ABDOMINAL DISCOMFORT [None]
  - MALAISE [None]
  - CONVULSION [None]
  - AGITATION [None]
  - COELIAC DISEASE [None]
  - CONCOMITANT DISEASE AGGRAVATED [None]
